FAERS Safety Report 11014704 (Version 2)
Quarter: 2015Q2

REPORT INFORMATION
  Report Type: Spontaneous
  Country: US (occurrence: US)
  Receive Date: 20150412
  Receipt Date: 20150525
  Transmission Date: 20150821
  Serious: No
  Sender: FDA-Public Use
  Company Number: US-JNJFOC-20150119509

PATIENT
  Age: 47 Year
  Sex: Female
  Weight: 61 kg

DRUGS (1)
  1. ULTRAM [Suspect]
     Active Substance: TRAMADOL HYDROCHLORIDE
     Indication: PRODUCT USED FOR UNKNOWN INDICATION
     Route: 065

REACTIONS (5)
  - Neuralgia [Unknown]
  - Headache [Unknown]
  - Insomnia [Unknown]
  - Drug dose omission [Unknown]
  - Drug ineffective [Unknown]

NARRATIVE: CASE EVENT DATE: 201412
